FAERS Safety Report 8432211-2 (Version None)
Quarter: 2012Q2

REPORT INFORMATION
  Report Type: 
  Country: None (occurrence: None)
  Receive Date: 20120613
  Receipt Date: 20120601
  Transmission Date: 20120825
  Serious: Yes (Death, Life-Threatening, Hospitalization, Disabling, Other)
  Sender: FDA-Public Use
  Company Number: IT-BRISTOL-MYERS SQUIBB COMPANY-16378978

PATIENT
  Age: 49 Year
  Sex: Male
  Weight: 62 kg

DRUGS (9)
  1. OMEPRAZOLE [Concomitant]
     Dates: start: 20111227, end: 20120125
  2. ENOXAPARIN SODIUM [Concomitant]
     Dates: start: 20120113, end: 20120125
  3. PEMETREXED DISODIUM [Suspect]
     Indication: NON-SMALL CELL LUNG CANCER
     Route: 042
     Dates: start: 20120117
  4. FOLIC ACID [Concomitant]
  5. CISPLATIN [Suspect]
     Indication: NON-SMALL CELL LUNG CANCER
     Route: 042
     Dates: start: 20120117
  6. DEXAMETHASONE [Concomitant]
     Dates: start: 20120116, end: 20120125
  7. DEXAMETHASONE SODIUM PHOSPHATE [Concomitant]
     Dates: start: 20120119, end: 20120125
  8. VITAMIN B-12 [Concomitant]
  9. METOCLOPRAMIDE [Concomitant]
     Dates: start: 20120110, end: 20120125

REACTIONS (15)
  - ANAEMIA [None]
  - HYPERKALAEMIA [None]
  - DECREASED APPETITE [None]
  - HEARING IMPAIRED [None]
  - SEPSIS [None]
  - BLOOD BILIRUBIN INCREASED [None]
  - WHITE BLOOD CELL COUNT DECREASED [None]
  - HYPONATRAEMIA [None]
  - PLATELET COUNT DECREASED [None]
  - FEBRILE NEUTROPENIA [None]
  - HYPERGLYCAEMIA [None]
  - FATIGUE [None]
  - RENAL FAILURE ACUTE [None]
  - DEHYDRATION [None]
  - HYPOALBUMINAEMIA [None]
